FAERS Safety Report 6163661-5 (Version None)
Quarter: 2009Q2

REPORT INFORMATION
  Report Type: 
  Country: None (occurrence: None)
  Receive Date: 20090422
  Receipt Date: 20090414
  Transmission Date: 20091009
  Serious: Yes (Other)
  Sender: FDA-Public Use
  Company Number: US-ROCHE-614346

PATIENT
  Sex: Female
  Weight: 145 kg

DRUGS (3)
  1. CAPECITABINE [Suspect]
     Route: 048
     Dates: start: 20080512, end: 20081231
  2. CAPECITABINE [Suspect]
     Route: 048
  3. TAXOTERE [Concomitant]

REACTIONS (6)
  - BACK PAIN [None]
  - GASTROENTERITIS VIRAL [None]
  - NEOPLASM [None]
  - OEDEMA PERIPHERAL [None]
  - PALMAR-PLANTAR ERYTHRODYSAESTHESIA SYNDROME [None]
  - SKIN ULCER [None]
